FAERS Safety Report 17397026 (Version 1)
Quarter: 2020Q1

REPORT INFORMATION
  Report Type: Spontaneous
  Country: US (occurrence: US)
  Receive Date: 20200207
  Receipt Date: 20200207
  Transmission Date: 20200409
  Serious: No
  Sender: FDA-Public Use
  Company Number: None

PATIENT
  Age: 57 Year
  Sex: Female
  Weight: 87.75 kg

DRUGS (7)
  1. VITAMIN D [Concomitant]
     Active Substance: VITAMIN D NOS
  2. ENBREL [Suspect]
     Active Substance: ETANERCEPT
     Indication: PSORIASIS
     Dosage: ?          QUANTITY:1 INJECTION(S);OTHER FREQUENCY:ONCE PER WEEK;?
     Route: 058
     Dates: start: 20190824, end: 20191102
  3. ELIDEL OINTMENTS [Concomitant]
  4. STELARA [Concomitant]
     Active Substance: USTEKINUMAB
  5. DICLOFENAC [Concomitant]
     Active Substance: DICLOFENAC
  6. ENBREL [Suspect]
     Active Substance: ETANERCEPT
     Indication: PSORIATIC ARTHROPATHY
     Dosage: ?          QUANTITY:1 INJECTION(S);OTHER FREQUENCY:ONCE PER WEEK;?
     Route: 058
     Dates: start: 20190824, end: 20191102
  7. PRESCRIPTION CREAMS [Concomitant]

REACTIONS (6)
  - Condition aggravated [None]
  - Lymphadenopathy [None]
  - Erythrodermic psoriasis [None]
  - Alopecia [None]
  - Lupus-like syndrome [None]
  - Feeling cold [None]

NARRATIVE: CASE EVENT DATE: 20191101
